FAERS Safety Report 16923506 (Version 5)
Quarter: 2022Q1

REPORT INFORMATION
  Report Type: Spontaneous
  Country: PT (occurrence: PT)
  Receive Date: 20191016
  Receipt Date: 20220317
  Transmission Date: 20220423
  Serious: Yes (Hospitalization, Other)
  Sender: FDA-Public Use
  Company Number: PT-002147023-NVSC2019PT003830

PATIENT
  Age: 68 Year
  Sex: Male

DRUGS (8)
  1. ZOLEDRONIC ACID [Suspect]
     Active Substance: ZOLEDRONIC ACID
     Indication: Prostate cancer
     Dosage: 4 MILLIGRAM  FOR 15 MINUTES, EVERY 4 WEEKS
     Route: 042
     Dates: start: 201502, end: 2016
  2. ZOLEDRONIC ACID [Suspect]
     Active Substance: ZOLEDRONIC ACID
     Indication: Metastases to bone
  3. ZOLEDRONIC ACID [Suspect]
     Active Substance: ZOLEDRONIC ACID
     Indication: Bone cancer metastatic
  4. TRIPTORELIN [Concomitant]
     Active Substance: TRIPTORELIN
     Indication: Prostate cancer
     Dosage: UNK
     Route: 065
     Dates: start: 201502
  5. TRIPTORELIN [Concomitant]
     Active Substance: TRIPTORELIN
     Indication: Metastases to bone
  6. CYPROTERONE ACETATE [Concomitant]
     Active Substance: CYPROTERONE ACETATE
     Indication: Prostate cancer
     Dosage: UNK
     Route: 065
     Dates: start: 201502
  7. CYPROTERONE ACETATE [Concomitant]
     Active Substance: CYPROTERONE ACETATE
     Indication: Metastases to bone
  8. LYSINE [Concomitant]
     Active Substance: LYSINE
     Indication: Product used for unknown indication
     Dosage: UNK
     Route: 065

REACTIONS (13)
  - Fanconi syndrome [Recovered/Resolved]
  - Anaemia [Unknown]
  - Renal tubular dysfunction [Recovering/Resolving]
  - Hypokalaemia [Unknown]
  - Renal injury [Unknown]
  - Hypertensive nephropathy [Unknown]
  - Renal tubular necrosis [Recovering/Resolving]
  - Nephropathy toxic [Unknown]
  - Asthenia [Unknown]
  - Renal tubular acidosis [Recovering/Resolving]
  - Metabolic acidosis [Recovered/Resolved]
  - Decreased appetite [Unknown]
  - Diabetic nephropathy [Unknown]

NARRATIVE: CASE EVENT DATE: 20160401
